FAERS Safety Report 6184760-8 (Version None)
Quarter: 2009Q2

REPORT INFORMATION
  Report Type: 
  Country: None (occurrence: None)
  Receive Date: 20090508
  Receipt Date: 20090429
  Transmission Date: 20091009
  Serious: Yes (Other)
  Sender: FDA-Public Use
  Company Number: PHEH2009US04244

PATIENT
  Sex: Female

DRUGS (6)
  1. DIOVAN [Suspect]
     Dosage: 320 MG, QD
     Route: 048
     Dates: start: 20071101
  2. NOVOLIN GE NPH [Concomitant]
  3. INSULIN ISOPHANE BOVINE [Concomitant]
  4. NORVASC [Concomitant]
  5. CARNOSINE [Concomitant]
  6. ACE INHIBITOR NOS [Concomitant]

REACTIONS (4)
  - ABASIA [None]
  - HYPOAESTHESIA [None]
  - OEDEMA PERIPHERAL [None]
  - PAIN IN EXTREMITY [None]
